FAERS Safety Report 7264646-8 (Version None)
Quarter: 2011Q1

REPORT INFORMATION
  Report Type: 
  Country: None (occurrence: None)
  Receive Date: 20110119
  Receipt Date: 20101208
  Transmission Date: 20110831
  Serious: Yes (Other)
  Sender: FDA-Public Use
  Company Number: 2009BH019099

PATIENT
  Age: 22 Year
  Sex: Female
  Weight: 61.2356 kg

DRUGS (45)
  1. SENSIPAR [Concomitant]
  2. SEVELAMER [Concomitant]
  3. HEPARIN SODIUM [Suspect]
     Indication: ANTICOAGULANT THERAPY
     Dosage: 25000 UNITS; CONTINUOUR; IVDRI
     Route: 041
     Dates: start: 20090407
  4. HEPARIN SODIUM [Suspect]
     Indication: HAEMODIALYSIS
     Dosage: 25000 UNITS; CONTINUOUR; IVDRI
     Route: 041
     Dates: start: 20090407
  5. HEPARIN SODIUM [Suspect]
     Indication: ANTICOAGULANT THERAPY
     Dosage: 25000 UNITS; CONTINUOUR; IVDRI
     Route: 041
     Dates: start: 20070131
  6. HEPARIN SODIUM [Suspect]
     Indication: HAEMODIALYSIS
     Dosage: 25000 UNITS; CONTINUOUR; IVDRI
     Route: 041
     Dates: start: 20070131
  7. HEPARIN SODIUM [Suspect]
     Indication: ANTICOAGULANT THERAPY
     Dosage: 25000 UNITS; CONTINUOUR; IVDRI
     Route: 041
     Dates: start: 20071208
  8. HEPARIN SODIUM [Suspect]
     Indication: HAEMODIALYSIS
     Dosage: 25000 UNITS; CONTINUOUR; IVDRI
     Route: 041
     Dates: start: 20071208
  9. HEPARIN SODIUM [Suspect]
     Indication: ANTICOAGULANT THERAPY
     Dosage: 25000 UNITS; CONTINUOUR; IVDRI
     Route: 041
     Dates: start: 20070925
  10. HEPARIN SODIUM [Suspect]
     Indication: HAEMODIALYSIS
     Dosage: 25000 UNITS; CONTINUOUR; IVDRI
     Route: 041
     Dates: start: 20070925
  11. HEPARIN SODIUM [Suspect]
     Indication: ANTICOAGULANT THERAPY
     Dosage: 25000 UNITS; CONTINUOUR; IVDRI
     Route: 041
     Dates: start: 20081101
  12. HEPARIN SODIUM [Suspect]
     Indication: HAEMODIALYSIS
     Dosage: 25000 UNITS; CONTINUOUR; IVDRI
     Route: 041
     Dates: start: 20081101
  13. HEPARIN SODIUM [Suspect]
     Indication: ANTICOAGULANT THERAPY
     Dosage: 25000 UNITS; CONTINUOUR; IVDRI
     Route: 041
     Dates: start: 20070925, end: 20070928
  14. HEPARIN SODIUM [Suspect]
     Indication: HAEMODIALYSIS
     Dosage: 25000 UNITS; CONTINUOUR; IVDRI
     Route: 041
     Dates: start: 20070925, end: 20070928
  15. HEPARIN SODIUM [Suspect]
     Indication: ANTICOAGULANT THERAPY
     Dosage: 25000 UNITS; CONTINUOUR; IVDRI
     Route: 041
     Dates: start: 20070601, end: 20071201
  16. HEPARIN SODIUM [Suspect]
     Indication: HAEMODIALYSIS
     Dosage: 25000 UNITS; CONTINUOUR; IVDRI
     Route: 041
     Dates: start: 20070601, end: 20071201
  17. HEPARIN SODIUM [Suspect]
     Indication: ANTICOAGULANT THERAPY
     Dosage: 25000 UNITS; CONTINUOUR; IVDRI
     Route: 041
     Dates: start: 20080401
  18. HEPARIN SODIUM [Suspect]
     Indication: HAEMODIALYSIS
     Dosage: 25000 UNITS; CONTINUOUR; IVDRI
     Route: 041
     Dates: start: 20080401
  19. PREDNISONE [Concomitant]
  20. OMEPRAZOLE [Concomitant]
  21. HEPARIN SODIUM [Suspect]
     Dosage: 25000 UNITS, CONTINUOUR; IV
     Route: 042
     Dates: start: 20090101
  22. HEPARIN SODIUM [Suspect]
     Dosage: 25000 UNITS, CONTINUOUR; IV
     Route: 042
     Dates: start: 20080430, end: 20080430
  23. HEPARIN SODIUM [Suspect]
     Dosage: 25000 UNITS, CONTINUOUR; IV
     Route: 042
     Dates: start: 20071205, end: 20080429
  24. HEPARIN SODIUM [Suspect]
     Dosage: 25000 UNITS, CONTINUOUR; IV
     Route: 042
     Dates: start: 20071212, end: 20071212
  25. HEPARIN SODIUM [Suspect]
     Dosage: 25000 UNITS, CONTINUOUR; IV
     Route: 042
     Dates: start: 20070918, end: 20090507
  26. HEPARIN SODIUM [Suspect]
     Dosage: 25000 UNITS, CONTINUOUR; IV
     Route: 042
     Dates: start: 20071023, end: 20071023
  27. HEPARIN SODIUM [Suspect]
     Dosage: 25000 UNITS, CONTINUOUR; IV
     Route: 042
     Dates: start: 20071208, end: 20071210
  28. HEPARIN SODIUM [Suspect]
     Dosage: 25000 UNITS, CONTINUOUR; IV
     Route: 042
     Dates: start: 20071206, end: 20071206
  29. HEPARIN SODIUM [Suspect]
     Dosage: 5000 UNITS 1X; SC
     Route: 058
     Dates: start: 20080522, end: 20080522
  30. AMITRIPTYLINE HCL [Concomitant]
  31. HYDROXYCHLOROQUINE [Concomitant]
  32. RENALTABS [Concomitant]
  33. BUTALBITAL W/ ASPIRIN + CAFFEINE [Concomitant]
  34. ZOLPIDEM [Concomitant]
  35. WARFARIN [Concomitant]
  36. HEPARIN SODIUM [Suspect]
     Dosage: SEE IMAGE: IVBOL
     Route: 040
     Dates: start: 20071205, end: 20080427
  37. HEPARIN SODIUM [Suspect]
     Dosage: SEE IMAGE: IVBOL
     Route: 040
     Dates: start: 20081018, end: 20081018
  38. HEPARIN SODIUM [Suspect]
     Dosage: SEE IMAGE: IVBOL
     Route: 040
     Dates: start: 20090101
  39. HEPARIN SODIUM [Suspect]
     Dosage: SEE IMAGE: IVBOL
     Route: 040
     Dates: start: 20071209, end: 20080219
  40. HEPARIN SODIUM [Suspect]
     Dosage: SEE IMAGE: IVBOL
     Route: 040
     Dates: start: 20080724, end: 20080923
  41. HEPARIN SODIUM [Suspect]
     Dosage: SEE IMAGE: IVBOL
     Route: 040
     Dates: end: 20071113
  42. HEPARIN SODIUM [Suspect]
     Dosage: SEE IMAGE: IVBOL
     Route: 040
     Dates: start: 20071206, end: 20071208
  43. HEPARIN SODIUM 10,000 UNITS IN SODIUM CHLORIDE 0.45% [Suspect]
     Indication: PRODUCT USED FOR UNKNOWN INDICATION
  44. VITAMIN E [Concomitant]
  45. PROPRANOLOL [Concomitant]

REACTIONS (37)
  - HEADACHE [None]
  - PAIN [None]
  - ASTHENIA [None]
  - MELAENA [None]
  - POST PROCEDURAL HAEMORRHAGE [None]
  - VASCULAR ACCESS COMPLICATION [None]
  - INTERNATIONAL NORMALISED RATIO DECREASED [None]
  - FIBROMYALGIA [None]
  - DEEP VEIN THROMBOSIS [None]
  - DIEULAFOY'S VASCULAR MALFORMATION [None]
  - STAPHYLOCOCCAL INFECTION [None]
  - DIARRHOEA [None]
  - CONDITION AGGRAVATED [None]
  - TACHYCARDIA [None]
  - DUODENAL ULCER HAEMORRHAGE [None]
  - PULMONARY EMBOLISM [None]
  - GASTROINTESTINAL HAEMORRHAGE [None]
  - GASTRITIS EROSIVE [None]
  - HYPOTENSION [None]
  - SEROMA [None]
  - TRANSPLANT FAILURE [None]
  - BACTERAEMIA [None]
  - NAUSEA [None]
  - HAEMODIALYSIS [None]
  - VAGINAL HAEMORRHAGE [None]
  - FUNGAEMIA [None]
  - HYPERCOAGULATION [None]
  - CELLULITIS [None]
  - RENAL FAILURE CHRONIC [None]
  - CALCIFICATION METASTATIC [None]
  - DEVICE RELATED INFECTION [None]
  - ANAEMIA [None]
  - SYSTEMIC LUPUS ERYTHEMATOSUS [None]
  - HAEMATEMESIS [None]
  - PERIRENAL HAEMATOMA [None]
  - REFUSAL OF TREATMENT BY PATIENT [None]
  - HYPERKALAEMIA [None]
